FAERS Safety Report 12815280 (Version 1)
Quarter: 2016Q4

REPORT INFORMATION
  Report Type: Spontaneous
  Country: DE (occurrence: DE)
  Receive Date: 20161005
  Receipt Date: 20161005
  Transmission Date: 20170207
  Serious: Yes (Hospitalization, Other)
  Sender: FDA-Public Use
  Company Number: DE-TEVA-688544GER

PATIENT
  Sex: Female

DRUGS (10)
  1. TARGIN RET [Concomitant]
     Dosage: 1 DOSAGE FORM CONTAINS 20 MG OXYCODONE AND 10 MG NALOXONE
     Route: 048
     Dates: start: 20160520
  2. NOVAMINSULFON LICHTENSTEIN FTA [Concomitant]
     Dosage: 3 DOSAGE FORMS DAILY;
     Route: 048
     Dates: start: 20160620
  3. TROMCARDIN COMPLEX [Concomitant]
     Dosage: 1 DOSAGE FORMS DAILY;
     Route: 048
     Dates: start: 201605
  4. TORASEMID 1A 20 MG TABLETTEN [Concomitant]
     Active Substance: TORSEMIDE
     Dosage: 80 MILLIGRAM DAILY;
     Dates: start: 20160620
  5. SPIRONOLACTON-RATIOPHARM 50 MG TABLETTEN [Suspect]
     Active Substance: SPIRONOLACTONE
     Dosage: 50 MILLIGRAM DAILY;
     Route: 048
     Dates: start: 20160620
  6. PREGABALIN AL 150 MG HKA [Concomitant]
     Dosage: 300 MILLIGRAM DAILY;
     Route: 048
     Dates: start: 20160321
  7. MOVICOL BTL. [Concomitant]
     Dosage: 2 DOSAGE FORMS DAILY;
     Dates: start: 20160520
  8. HCT DEXEL 12,5 MG TABLETTEN [Interacting]
     Active Substance: HYDROCHLOROTHIAZIDE
     Dosage: 12.5 MILLIGRAM DAILY;
     Route: 048
     Dates: start: 20160620
  9. TARGIN RET [Concomitant]
     Dosage: 1 DOSAGE FORM CONTAINS 10 MG OXYCODONE AND 5 MG NALOXONE
     Route: 048
     Dates: start: 20160620
  10. TARGIN 10/5 RET [Concomitant]
     Route: 048
     Dates: start: 20160620

REACTIONS (5)
  - Acute kidney injury [Unknown]
  - Blood uric acid increased [None]
  - Haemorrhage [Not Recovered/Not Resolved]
  - Contusion [Recovering/Resolving]
  - Drug interaction [Unknown]

NARRATIVE: CASE EVENT DATE: 2016
